FAERS Safety Report 24413049 (Version 2)
Quarter: 2025Q1

REPORT INFORMATION
  Report Type: Spontaneous
  Country: US (occurrence: US)
  Receive Date: 20241008
  Receipt Date: 20250101
  Transmission Date: 20250408
  Serious: No
  Sender: SANOFI AVENTIS
  Company Number: US-SA-2024SA283307

PATIENT
  Age: 10 Year
  Sex: Male
  Weight: 36.5 kg

DRUGS (2)
  1. DUPIXENT [Suspect]
     Active Substance: DUPILUMAB
     Indication: Eosinophilic oesophagitis
     Dosage: 300 MG, QW
     Route: 058
  2. DUPIXENT [Suspect]
     Active Substance: DUPILUMAB
     Dosage: 300 MG, QW
     Route: 058
     Dates: start: 20241226

REACTIONS (5)
  - Illness [Unknown]
  - Weight decreased [Unknown]
  - Vomiting [Unknown]
  - Ingrowing nail [Unknown]
  - Off label use [Unknown]

NARRATIVE: CASE EVENT DATE: 20240101
